FAERS Safety Report 12956729 (Version 3)
Quarter: 2017Q1

REPORT INFORMATION
  Report Type: Spontaneous
  Country: FR (occurrence: FR)
  Receive Date: 20161119
  Receipt Date: 20170126
  Transmission Date: 20170428
  Serious: Yes (Life-Threatening, Hospitalization, Other)
  Sender: FDA-Public Use
  Company Number: FR-BAXTER-2016BAX057647

PATIENT
  Age: 62 Year
  Sex: Female

DRUGS (7)
  1. EPIRUBICIN [Suspect]
     Active Substance: EPIRUBICIN
     Indication: BREAST CANCER
     Dosage: 10 COURSES QUADRITHERAPY
     Route: 065
     Dates: start: 201605, end: 201609
  2. ENDOXAN 1000 MG, POUDRE POUR SOLUTION INJECTABLE [Suspect]
     Active Substance: CYCLOPHOSPHAMIDE
     Dosage: 6 COURSES NEO-ADJUVANT THERAPY
     Route: 042
     Dates: start: 20160606, end: 20160801
  3. INNOHEP [Concomitant]
     Active Substance: TINZAPARIN SODIUM
     Indication: PRODUCT USED FOR UNKNOWN INDICATION
     Dosage: 0.5 ML (10000 IU), 1 INJECTION
     Route: 058
  4. ENDOXAN 1000 MG, POUDRE POUR SOLUTION INJECTABLE [Suspect]
     Active Substance: CYCLOPHOSPHAMIDE
     Indication: BREAST CANCER
     Dosage: QUADRITHERAPY, TOTAL 10 COURSES
     Route: 065
     Dates: start: 201605, end: 201609
  5. FLUOROURACIL. [Suspect]
     Active Substance: FLUOROURACIL
     Indication: BREAST CANCER
     Dosage: 10 COURSES QUADRITHERAPY
     Route: 065
     Dates: start: 201605, end: 201609
  6. PACLITAXEL HOSPIRA [Suspect]
     Active Substance: PACLITAXEL
     Indication: BREAST CANCER
     Dosage: 6 COURSES NEO-ADJUVANT THERAPY
     Route: 042
     Dates: start: 20160822, end: 20160926
  7. DOCETAXEL. [Suspect]
     Active Substance: DOCETAXEL
     Indication: BREAST CANCER
     Dosage: 10 COURSES QUADRITHERAPY
     Route: 065
     Dates: start: 201605, end: 201609

REACTIONS (4)
  - Interstitial lung disease [Recovering/Resolving]
  - General physical health deterioration [Unknown]
  - Infection [Unknown]
  - Lymphocytosis [Unknown]

NARRATIVE: CASE EVENT DATE: 201609
